FAERS Safety Report 8454164-3 (Version None)
Quarter: 2012Q2

REPORT INFORMATION
  Report Type: 
  Country: None (occurrence: None)
  Receive Date: 20120620
  Receipt Date: 20120607
  Transmission Date: 20120825
  Serious: Yes (Life-Threatening, Hospitalization)
  Sender: FDA-Public Use
  Company Number: PT-FRI-1000027206

PATIENT
  Sex: Male
  Weight: 72 kg

DRUGS (4)
  1. IRBESARTAN [Concomitant]
     Indication: HYPERTENSION
     Dosage: 300 MG
     Dates: start: 20110101
  2. HIDROCLOROTIAZIDA [Concomitant]
     Indication: HYPERTENSION
     Dosage: 12.5 MG
     Dates: start: 20110101
  3. LORAZEPAM [Concomitant]
     Indication: ANXIETY
     Dosage: 1 MG
     Dates: start: 20110101
  4. ESCITALOPRAM [Suspect]
     Indication: DEPRESSION
     Dosage: 10 MG
     Route: 048
     Dates: start: 20111223, end: 20111224

REACTIONS (5)
  - SWOLLEN TONGUE [None]
  - DYSPNOEA [None]
  - OEDEMA MOUTH [None]
  - DIZZINESS [None]
  - OROPHARYNGEAL PAIN [None]
